FAERS Safety Report 8272391-5 (Version None)
Quarter: 2012Q2

REPORT INFORMATION
  Report Type: 
  Country: None (occurrence: None)
  Receive Date: 20120410
  Receipt Date: 20120403
  Transmission Date: 20120825
  Serious: Yes (Life-Threatening, Hospitalization)
  Sender: FDA-Public Use
  Company Number: CHPA2012US004596

PATIENT
  Sex: Male

DRUGS (3)
  1. EXCEDRIN TENSION HEADACHE CAPLETS [Suspect]
     Dosage: UNK, UNK
     Route: 048
  2. EXCEDRIN TENSION HEADACHE CAPLETS [Suspect]
     Dosage: UNK, UNK
     Route: 048
  3. COUMADIN [Concomitant]
     Dosage: UNK, UNK

REACTIONS (4)
  - CEREBROVASCULAR ACCIDENT [None]
  - PRODUCT CONTAMINATION [None]
  - HAEMORRHAGE [None]
  - INTERNATIONAL NORMALISED RATIO INCREASED [None]
